FAERS Safety Report 9063633 (Version 2)
Quarter: 2013Q2

REPORT INFORMATION
  Report Type: Spontaneous
  Country: DE (occurrence: DE)
  Receive Date: 20130213
  Receipt Date: 20130603
  Transmission Date: 20140414
  Serious: Yes (Death, Life-Threatening, Other)
  Sender: FDA-Public Use
  Company Number: DE-B.I. PHARMACEUTICALS,INC./RIDGEFIELD-2013-DE-00323DE

PATIENT
  Age: 63 Year
  Sex: Male
  Weight: 78 kg

DRUGS (2)
  1. PRADAXA [Suspect]
     Indication: CONGESTIVE CARDIOMYOPATHY
     Dosage: 300 MG
     Route: 048
     Dates: start: 201301, end: 20130130
  2. PRADAXA [Suspect]
     Indication: ATRIAL FIBRILLATION

REACTIONS (9)
  - Subarachnoid haemorrhage [Fatal]
  - Multi-organ failure [Fatal]
  - Wound haemorrhage [Unknown]
  - Coagulopathy [Not Recovered/Not Resolved]
  - Diverticulitis [Not Recovered/Not Resolved]
  - Peritonitis [Not Recovered/Not Resolved]
  - Sepsis [Not Recovered/Not Resolved]
  - Ileus [Not Recovered/Not Resolved]
  - Prerenal failure [Unknown]
